FAERS Safety Report 13825936 (Version 1)
Quarter: 2017Q3

REPORT INFORMATION
  Report Type: Spontaneous
  Country: GB (occurrence: GB)
  Receive Date: 20170802
  Receipt Date: 20170802
  Transmission Date: 20171127
  Serious: Yes (Other)
  Sender: FDA-Public Use
  Company Number: GB-TEVA-791399ACC

PATIENT
  Age: 49 Year
  Sex: Female

DRUGS (9)
  1. CLARITHROMYCIN. [Concomitant]
     Active Substance: CLARITHROMYCIN
     Dosage: AT 07:00 AND 17:00.
     Dates: start: 20170427, end: 20170504
  2. AMITRIPTYLINE HYDROCHLORIDE. [Concomitant]
     Active Substance: AMITRIPTYLINE HYDROCHLORIDE
     Dosage: AT 21:00.
     Dates: start: 20170204, end: 20170504
  3. OMEPRAZOLE. [Concomitant]
     Active Substance: OMEPRAZOLE
     Dosage: AT 07:00.
     Dates: start: 20170205, end: 20170504
  4. QUETIAPINE. [Concomitant]
     Active Substance: QUETIAPINE
     Dosage: AT 12:00 AND 17:00.
     Dates: start: 20170204, end: 20170504
  5. IBUPROFEN. [Concomitant]
     Active Substance: IBUPROFEN
     Dates: start: 20170423, end: 20170423
  6. PROCYCLIDINE [Concomitant]
     Active Substance: PROCYCLIDINE
     Dosage: AT 07:00, 12:00 AND 17:00.
     Dates: start: 20170404, end: 20170504
  7. MIRTAZAPINE. [Concomitant]
     Active Substance: MIRTAZAPINE
     Dosage: AT 21:00.
     Dates: start: 20170326, end: 20170504
  8. VENLAFAXINE [Concomitant]
     Active Substance: VENLAFAXINE HYDROCHLORIDE
     Dosage: AT 07:00.
     Dates: start: 20170205, end: 20170504
  9. MORPHINE SULFATE. [Suspect]
     Active Substance: MORPHINE SULFATE
     Dates: start: 20170711

REACTIONS (1)
  - Swelling face [Recovered/Resolved]

NARRATIVE: CASE EVENT DATE: 20170711
